FAERS Safety Report 13887054 (Version 1)
Quarter: 2017Q3

REPORT INFORMATION
  Report Type: Report from Study
  Country: US (occurrence: US)
  Receive Date: 20170821
  Receipt Date: 20170821
  Transmission Date: 20171127
  Serious: Yes (Other)
  Sender: FDA-Public Use
  Company Number: US-BAYER-2017-155801

PATIENT
  Age: 61 Year
  Sex: Male

DRUGS (2)
  1. ASPIRIN. [Suspect]
     Active Substance: ASPIRIN
  2. CLOPIDOGREL [Interacting]
     Active Substance: CLOPIDOGREL BISULFATE

REACTIONS (5)
  - Anaemia [None]
  - Pain in extremity [None]
  - Drug administration error [None]
  - Haematoma [None]
  - Labelled drug-drug interaction medication error [None]
